FAERS Safety Report 11714947 (Version 2)
Quarter: 2015Q4

REPORT INFORMATION
  Report Type: Spontaneous
  Country: IT (occurrence: IT)
  Receive Date: 20151109
  Receipt Date: 20151110
  Transmission Date: 20160304
  Serious: Yes (Hospitalization, Other)
  Sender: FDA-Public Use
  Company Number: IT-ABBVIE-15P-083-1496893-00

PATIENT
  Age: 36 Year
  Sex: Male

DRUGS (4)
  1. ABILIFY [Suspect]
     Active Substance: ARIPIPRAZOLE
     Indication: INTENTIONAL SELF-INJURY
     Dosage: UNKNOWN
     Route: 048
     Dates: start: 20150910, end: 20150910
  2. ZOLOFT [Suspect]
     Active Substance: SERTRALINE HYDROCHLORIDE
     Indication: INTENTIONAL SELF-INJURY
     Route: 048
     Dates: start: 20150910, end: 20150910
  3. DEPAKINE [Suspect]
     Active Substance: VALPROATE SODIUM
     Indication: INTENTIONAL SELF-INJURY
     Route: 048
     Dates: start: 20150910, end: 20150910
  4. RIVOTRIL [Suspect]
     Active Substance: CLONAZEPAM
     Indication: INTENTIONAL SELF-INJURY
     Dosage: 20 UNIT(S);TOTAL
     Route: 065
     Dates: start: 20150910, end: 20150910

REACTIONS (2)
  - Overdose [Unknown]
  - Sopor [Recovering/Resolving]

NARRATIVE: CASE EVENT DATE: 20150910
